FAERS Safety Report 25332302 (Version 1)
Quarter: 2025Q2

REPORT INFORMATION
  Report Type: Spontaneous
  Country: US (occurrence: None)
  Receive Date: 20250519
  Receipt Date: 20250519
  Transmission Date: 20250716
  Serious: No
  Sender: FDA-CTU
  Company Number: None

PATIENT
  Age: 44 Year
  Sex: Female

DRUGS (1)
  1. XIIDRA [Suspect]
     Active Substance: LIFITEGRAST
     Dosage: 1  GTT DROP  TWICE A DAY OPHTALMIC
     Route: 047

REACTIONS (4)
  - Eye pain [None]
  - Headache [None]
  - Nausea [None]
  - Abdominal pain upper [None]
